FAERS Safety Report 11167667 (Version 1)
Quarter: 2015Q2

REPORT INFORMATION
  Report Type: Spontaneous
  Country: US (occurrence: None)
  Receive Date: 20150515
  Receipt Date: 20150515
  Transmission Date: 20150821
  Serious: Yes (Hospitalization, Other)
  Sender: FDA-Public Use
  Company Number: 2014022842

PATIENT
  Age: 24 Year
  Sex: Male
  Weight: 63 kg

DRUGS (2)
  1. METRONIDAZOLE (METRONIDAZOLE) [Concomitant]
     Active Substance: METRONIDAZOLE
  2. CIMZIA [Suspect]
     Active Substance: CERTOLIZUMAB PEGOL
     Indication: CROHN^S DISEASE
     Route: 058
     Dates: start: 201406, end: 20140923

REACTIONS (5)
  - Abdominal pain [None]
  - Weight decreased [None]
  - Pyrexia [None]
  - Crohn^s disease [None]
  - Rectal haemorrhage [None]

NARRATIVE: CASE EVENT DATE: 20140909
